FAERS Safety Report 18997795 (Version 4)
Quarter: 2021Q1

REPORT INFORMATION
  Report Type: Report from Study
  Country: BR (occurrence: BR)
  Receive Date: 20210311
  Receipt Date: 20210331
  Transmission Date: 20210420
  Serious: Yes (Other)
  Sender: FDA-Public Use
  Company Number: BR-TAKEDA-BR202016960

PATIENT
  Age: 20 Year
  Sex: Male
  Weight: 41 kg

DRUGS (14)
  1. IDURSULFASE [Suspect]
     Active Substance: IDURSULFASE
     Dosage: 5 DOSAGE FORM
     Route: 042
  2. PROPANOLOL BOEHRINGER [Concomitant]
     Dosage: 20 MILLIGRAM, BID
     Route: 065
  3. PROPANOLOL BOEHRINGER [Concomitant]
     Indication: CARDIAC DISORDER
     Dosage: 20 MILLIGRAM, QD
     Route: 065
  4. SPIRONOLACTONE. [Concomitant]
     Active Substance: SPIRONOLACTONE
     Indication: CARDIAC DISORDER
     Dosage: 25 MILLIGRAM, QD
     Route: 065
  5. LORATADINE. [Concomitant]
     Active Substance: LORATADINE
     Indication: HYPERSENSITIVITY
     Dosage: 1 DOSAGE FORM
     Route: 065
  6. IDURSULFASE [Suspect]
     Active Substance: IDURSULFASE
     Dosage: 5 DOSAGE FORM, 1/WEEK
     Route: 042
  7. IDURSULFASE [Suspect]
     Active Substance: IDURSULFASE
     Indication: MUCOPOLYSACCHARIDOSIS II
     Dosage: 5 VIALS OF 2 MF, 1X/WEEK
     Route: 065
  8. IDURSULFASE [Suspect]
     Active Substance: IDURSULFASE
     Dosage: 5 DOSAGE FORM
     Route: 065
  9. CAPTOPRIL. [Concomitant]
     Active Substance: CAPTOPRIL
     Dosage: 12.5 MILLIGRAM, BID
     Route: 065
  10. DIPYRONE [Concomitant]
     Active Substance: DIPYRONE
  11. IVERMECTIN. [Concomitant]
     Active Substance: IVERMECTIN
     Dosage: 2 DOSAGE FORM, 2/MONTH
     Route: 065
     Dates: start: 20210301
  12. CAPTOPRIL. [Concomitant]
     Active Substance: CAPTOPRIL
     Indication: CARDIAC DISORDER
     Dosage: 12 MILLIGRAM, QD
     Route: 065
  13. LORATADINE. [Concomitant]
     Active Substance: LORATADINE
     Dosage: 10 MILLIGRAM
  14. APEVITIN BC [ASCORBIC ACID;CYPROHEPTADINE HYDROCHLORIDE;NICOTINAMIDE;P [Concomitant]
     Indication: VITAMIN SUPPLEMENTATION
     Dosage: UNK UNK, QD (AFTER LUNCH)
     Route: 065

REACTIONS (9)
  - Inappropriate schedule of product administration [Unknown]
  - Product administration error [Unknown]
  - Urinary tract infection [Recovered/Resolved]
  - Intentional dose omission [Unknown]
  - Dose calculation error [Recovered/Resolved]
  - COVID-19 [Recovered/Resolved]
  - Hypersensitivity [Recovered/Resolved]
  - Product dose omission issue [Unknown]
  - Weight decreased [Unknown]

NARRATIVE: CASE EVENT DATE: 20200820
